FAERS Safety Report 10062901 (Version 2)
Quarter: 2014Q2

REPORT INFORMATION
  Report Type: Report from Study
  Country: JP (occurrence: JP)
  Receive Date: 20140407
  Receipt Date: 20140609
  Transmission Date: 20141212
  Serious: Yes (Hospitalization, Other)
  Sender: FDA-Public Use
  Company Number: JP-ABBVIE-14P-087-1218940-00

PATIENT
  Age: 22 Year
  Sex: Male
  Weight: 46.9 kg

DRUGS (9)
  1. HUMIRA [Suspect]
     Indication: CROHN^S DISEASE
     Route: 058
     Dates: start: 20130417, end: 20130417
  2. HUMIRA [Suspect]
     Dates: start: 20130501, end: 20130501
  3. HUMIRA [Suspect]
     Dates: start: 20130515, end: 20130710
  4. PREDNISOLONE [Concomitant]
     Indication: CROHN^S DISEASE
     Route: 048
     Dates: end: 20130618
  5. PREDNISOLONE [Concomitant]
     Route: 048
     Dates: start: 20130619, end: 20130819
  6. MESALAZINE [Concomitant]
     Indication: CROHN^S DISEASE
     Route: 048
  7. RABEPRAZOLE SODIUM [Concomitant]
     Indication: PROPHYLAXIS
     Route: 048
  8. ALENDRONATE SODIUM HYDRATE [Concomitant]
     Indication: PROPHYLAXIS
     Route: 048
  9. ENTERAL NUTRITION THERAPY [Concomitant]
     Indication: PRODUCT USED FOR UNKNOWN INDICATION
     Dates: end: 20130811

REACTIONS (5)
  - Ileal stenosis [Recovered/Resolved]
  - Crohn^s disease [Unknown]
  - Abdominal pain [Unknown]
  - Gastrointestinal sounds abnormal [Unknown]
  - Diarrhoea [Unknown]
